FAERS Safety Report 21435153 (Version 2)
Quarter: 2022Q4

REPORT INFORMATION
  Report Type: Report from Study
  Country: US (occurrence: US)
  Receive Date: 20221010
  Receipt Date: 20221103
  Transmission Date: 20230113
  Serious: Yes (Other)
  Sender: FDA-Public Use
  Company Number: US-BAYER-2022A135114

PATIENT
  Age: 66 Year
  Sex: Male

DRUGS (5)
  1. STIVARGA [Suspect]
     Active Substance: REGORAFENIB
     Indication: Colon cancer
     Dosage: 80 MG, QD FOR 1ST WEEK
     Route: 048
     Dates: start: 20220829, end: 20220904
  2. STIVARGA [Suspect]
     Active Substance: REGORAFENIB
     Indication: Colon cancer
     Dosage: 120 MG, QD
     Route: 048
     Dates: start: 20220905, end: 20220911
  3. STIVARGA [Suspect]
     Active Substance: REGORAFENIB
     Indication: Colon cancer
     Dosage: 160 MG, QD
     Route: 048
     Dates: start: 20220912, end: 20220918
  4. STIVARGA [Suspect]
     Active Substance: REGORAFENIB
     Indication: Colon cancer
     Dosage: 160 MG, QD FOR 21 DAYS ON, 7 DAYS OFF
     Route: 048
     Dates: start: 20220926, end: 20221023
  5. STIVARGA [Suspect]
     Active Substance: REGORAFENIB
     Indication: Colon cancer
     Dosage: 120 MG, QD FOR 21 DAYS ON, 7 DAYS OFF
     Route: 048
     Dates: start: 20221024

REACTIONS (11)
  - Neuropathy peripheral [Not Recovered/Not Resolved]
  - Blood pressure increased [Recovering/Resolving]
  - Headache [Recovered/Resolved]
  - Fatigue [Not Recovered/Not Resolved]
  - Hyperkeratosis [Not Recovered/Not Resolved]
  - Pain of skin [Not Recovered/Not Resolved]
  - Insomnia [Recovered/Resolved]
  - Ear infection [Recovered/Resolved]
  - Loss of personal independence in daily activities [Not Recovered/Not Resolved]
  - Hyperkeratosis [Not Recovered/Not Resolved]
  - Off label use [None]

NARRATIVE: CASE EVENT DATE: 20220829
